FAERS Safety Report 6903726-0 (Version None)
Quarter: 2010Q3

REPORT INFORMATION
  Report Type: 
  Country: None (occurrence: None)
  Receive Date: 20100804
  Receipt Date: 20081201
  Transmission Date: 20110219
  Serious: No
  Sender: FDA-Public Use
  Company Number: US-PFIZER INC-2008089178

PATIENT
  Sex: Female
  Weight: 61.4 kg

DRUGS (5)
  1. LYRICA [Suspect]
     Indication: MIGRAINE
     Route: 048
     Dates: start: 20080910, end: 20081101
  2. PRILOSEC [Concomitant]
  3. FEMHRT [Concomitant]
  4. CALCIUM [Concomitant]
  5. BLISTEX [Concomitant]

REACTIONS (1)
  - NIGHT SWEATS [None]
